FAERS Safety Report 6396492-1 (Version None)
Quarter: 2009Q4

REPORT INFORMATION
  Report Type: 
  Country: None (occurrence: None)
  Receive Date: 20091012
  Receipt Date: 20091001
  Transmission Date: 20100525
  Serious: Yes (Hospitalization)
  Sender: FDA-Public Use
  Company Number: US-AMGEN-QUU367251

PATIENT
  Sex: Female

DRUGS (1)
  1. ENBREL [Suspect]
     Indication: SJOGREN'S SYNDROME
     Route: 058
     Dates: start: 20020601

REACTIONS (7)
  - ARTHRITIS [None]
  - EYE DISORDER [None]
  - FATIGUE [None]
  - IMPAIRED HEALING [None]
  - JOINT SWELLING [None]
  - PAIN [None]
  - PAIN IN EXTREMITY [None]
